FAERS Safety Report 8998558 (Version 1)
Quarter: 2013Q1

REPORT INFORMATION
  Report Type: Spontaneous
  Country: US (occurrence: US)
  Receive Date: 20130103
  Receipt Date: 20130103
  Transmission Date: 20140127
  Serious: Yes (Other)
  Sender: FDA-Public Use
  Company Number: US-ASTRAZENECA-2012SE95249

PATIENT
  Age: 91 Year
  Sex: Male
  Weight: 90.7 kg

DRUGS (10)
  1. ATACAND [Suspect]
     Indication: CARDIAC DISORDER
     Route: 048
  2. CARVEDILOL [Concomitant]
     Indication: CARDIAC DISORDER
  3. SPIRONOLACTONE [Concomitant]
     Indication: DIURETIC THERAPY
  4. CALCITRIOL [Concomitant]
  5. SIMVASTATIN [Concomitant]
     Indication: BLOOD CHOLESTEROL ABNORMAL
  6. FUROSEMIDE [Concomitant]
     Indication: CARDIAC DISORDER
  7. VITAMIN D [Concomitant]
     Indication: ANAEMIA
     Dates: start: 20121026
  8. GLIMPIRIDE [Concomitant]
     Indication: DIABETES MELLITUS
  9. JENUVIA [Concomitant]
     Indication: DIABETES MELLITUS
     Route: 048
  10. JENUVIA [Concomitant]
     Indication: DIABETES MELLITUS
     Route: 048

REACTIONS (21)
  - Fall [Unknown]
  - Loss of consciousness [Unknown]
  - Musculoskeletal pain [Unknown]
  - Local swelling [Unknown]
  - Joint swelling [Unknown]
  - Vertigo [Unknown]
  - Dysstasia [Unknown]
  - Gait disturbance [Unknown]
  - Neuropathy peripheral [Unknown]
  - Arthritis [Unknown]
  - Diabetic eye disease [Unknown]
  - Exercise tolerance decreased [Unknown]
  - Decubitus ulcer [Unknown]
  - Weight decreased [Unknown]
  - Aphagia [Unknown]
  - Pain [Unknown]
  - Memory impairment [Unknown]
  - Anaemia [Unknown]
  - Diabetes mellitus [Unknown]
  - Cardiac disorder [Unknown]
  - Dizziness [Unknown]
